FAERS Safety Report 16006278 (Version 1)
Quarter: 2019Q1

REPORT INFORMATION
  Report Type: Spontaneous
  Country: US (occurrence: US)
  Receive Date: 20190226
  Receipt Date: 20190226
  Transmission Date: 20190418
  Serious: Yes (Other)
  Sender: FDA-Public Use
  Company Number: US-PFIZER INC-2019087814

PATIENT
  Age: 47 Year
  Sex: Female

DRUGS (17)
  1. PANTOPRAZOLE [Suspect]
     Active Substance: PANTOPRAZOLE
     Dosage: 20-40 MG, 1X/DAY
     Dates: start: 20120418, end: 2016
  2. MAALOX [ALUMINIUM HYDROXIDE GEL;MAGNESIUM HYDROXIDE] [Concomitant]
     Dosage: 10-20 ML, 2-3 TIMES A WEEK
     Dates: start: 2009
  3. NEXIUM [Suspect]
     Active Substance: ESOMEPRAZOLE MAGNESIUM
     Indication: GASTROOESOPHAGEAL REFLUX DISEASE
     Dosage: 20-40 MG, 1X/DAY
     Dates: start: 20090323, end: 20090701
  4. PANTOPRAZOLE [Suspect]
     Active Substance: PANTOPRAZOLE
     Indication: GASTROOESOPHAGEAL REFLUX DISEASE
     Dosage: 20-40 MG, 1X/DAY
     Dates: start: 20100302, end: 20100401
  5. ESOMEPRAZOLE MAGNESIUM. [Suspect]
     Active Substance: ESOMEPRAZOLE MAGNESIUM
     Indication: GASTROOESOPHAGEAL REFLUX DISEASE
     Dosage: 40 MG, 1X/DAY
     Dates: start: 20151007, end: 20160928
  6. LANSOPRAZOLE. [Suspect]
     Active Substance: LANSOPRAZOLE
     Dosage: 15-30 MG, 1X/DAY
     Dates: start: 20120827, end: 20130131
  7. NEXIUM 24HR [Suspect]
     Active Substance: ESOMEPRAZOLE MAGNESIUM
     Indication: GASTROOESOPHAGEAL REFLUX DISEASE
     Dosage: 20 MG, 1X/DAY
     Dates: start: 201509
  8. VITAMIN B12 [Concomitant]
     Active Substance: CYANOCOBALAMIN
     Indication: ANAEMIA
     Dosage: UNK
     Dates: start: 2017
  9. VITAMIN C [Concomitant]
     Active Substance: ASCORBIC ACID
     Indication: BLOOD IRON ABNORMAL
     Dosage: UNK
     Dates: start: 2000
  10. ACETAMINOPHEN. [Concomitant]
     Active Substance: ACETAMINOPHEN
     Indication: PAIN
     Dosage: UNK
     Dates: start: 2015, end: 2016
  11. RANITIDINE. [Concomitant]
     Active Substance: RANITIDINE
     Dosage: UNK
     Dates: start: 20160804
  12. LANSOPRAZOLE. [Suspect]
     Active Substance: LANSOPRAZOLE
     Indication: GASTROOESOPHAGEAL REFLUX DISEASE
     Dosage: 15-30 MG, 1X/DAY
     Dates: start: 20100423, end: 20120202
  13. CEPHALEXIN [CEFALEXIN] [Concomitant]
     Active Substance: CEPHALEXIN
     Indication: BACTERIAL INFECTION
     Dosage: UNK
     Dates: start: 20151006, end: 20180711
  14. TYLENOL [Concomitant]
     Active Substance: ACETAMINOPHEN
     Indication: INTERVERTEBRAL DISC DEGENERATION
     Dosage: UNK
     Dates: start: 2015
  15. NEXIUM [Suspect]
     Active Substance: ESOMEPRAZOLE MAGNESIUM
     Dosage: 20-40 MG, 1X/DAY
     Dates: start: 20150602, end: 20151010
  16. TRIMETHOPRIM SULFAMETHOXAZOLE [Concomitant]
     Active Substance: SULFAMETHOXAZOLE\TRIMETHOPRIM
     Indication: BACTERIAL INFECTION
     Dosage: UNK
     Dates: start: 20160906, end: 20161004
  17. TUMS [Concomitant]
     Active Substance: CALCIUM CARBONATE
     Dosage: 2 DF, DAILY
     Dates: start: 2009

REACTIONS (3)
  - Condition aggravated [Not Recovered/Not Resolved]
  - Chronic kidney disease [Not Recovered/Not Resolved]
  - Gastrooesophageal reflux disease [Not Recovered/Not Resolved]

NARRATIVE: CASE EVENT DATE: 201609
